FAERS Safety Report 23783687 (Version 1)
Quarter: 2024Q2

REPORT INFORMATION
  Report Type: Spontaneous
  Country: AT (occurrence: AT)
  Receive Date: 20240425
  Receipt Date: 20240425
  Transmission Date: 20240716
  Serious: Yes (Hospitalization, Other)
  Sender: FDA-Public Use
  Company Number: AT-ROCHE-2771980

PATIENT
  Age: 54 Year
  Sex: Female
  Weight: 100.9 kg

DRUGS (98)
  1. ATEZOLIZUMAB [Suspect]
     Active Substance: ATEZOLIZUMAB
     Dosage: 1200 MG, QW
     Route: 041
     Dates: start: 20210104
  2. ATEZOLIZUMAB [Suspect]
     Active Substance: ATEZOLIZUMAB
     Dosage: 1200 MG, QW
     Route: 041
     Dates: start: 20210126
  3. ATEZOLIZUMAB [Suspect]
     Active Substance: ATEZOLIZUMAB
     Dosage: 1200 MG, Q3W (START AND END DATE OF MOST RECENT DOSE OF STUDY DRUG PRIOR TO AE 26 JAN 2021)
     Route: 042
     Dates: start: 20210105
  4. ATEZOLIZUMAB [Suspect]
     Active Substance: ATEZOLIZUMAB
     Indication: Small cell lung cancer extensive stage
     Dosage: 1200 MG
     Route: 042
     Dates: start: 20201211
  5. ATEZOLIZUMAB [Suspect]
     Active Substance: ATEZOLIZUMAB
     Dosage: 1200 MG
     Route: 065
  6. CARBOPLATIN [Suspect]
     Active Substance: CARBOPLATIN
     Indication: Small cell lung cancer extensive stage
     Dosage: 853.8 MG (05 JAN 2021)
     Route: 065
  7. CARBOPLATIN [Suspect]
     Active Substance: CARBOPLATIN
     Dosage: UNK
     Route: 065
     Dates: start: 20211210, end: 20211210
  8. ETOPOSIDE [Suspect]
     Active Substance: ETOPOSIDE
     Indication: Small cell lung cancer extensive stage
     Dosage: 212 MG
     Route: 042
     Dates: start: 20201211
  9. ETOPOSIDE [Suspect]
     Active Substance: ETOPOSIDE
     Dosage: 212 MG
     Route: 042
     Dates: start: 20210105
  10. ETOPOSIDE [Suspect]
     Active Substance: ETOPOSIDE
     Dosage: UNK
     Route: 065
     Dates: start: 20211210
  11. AMLODIPINE [Concomitant]
     Active Substance: AMLODIPINE BESYLATE
     Dosage: QD
     Route: 065
     Dates: start: 200911
  12. AMLODIPINE [Concomitant]
     Active Substance: AMLODIPINE BESYLATE
     Indication: Product used for unknown indication
     Dosage: UNK, QD
     Route: 065
     Dates: start: 200911
  13. ARANESP [Concomitant]
     Active Substance: DARBEPOETIN ALFA
     Dosage: QD
     Route: 065
     Dates: start: 20210215, end: 20210215
  14. ARANESP [Concomitant]
     Active Substance: DARBEPOETIN ALFA
     Dosage: QD
     Route: 065
     Dates: start: 20210319, end: 20210319
  15. ARANESP [Concomitant]
     Active Substance: DARBEPOETIN ALFA
     Indication: Prophylaxis
     Dosage: UNK, QD
     Route: 065
     Dates: start: 20210215, end: 20210215
  16. ARANESP [Concomitant]
     Active Substance: DARBEPOETIN ALFA
     Dosage: UNK, QD
     Route: 065
     Dates: start: 20210319, end: 20210319
  17. ATEZOLIZUMAB [Concomitant]
     Active Substance: ATEZOLIZUMAB
     Indication: Small cell lung cancer extensive stage
     Dosage: 1200 MG
     Route: 065
  18. ASCORBIC ACID\CALCIUM PHOSPHATE\CHOLECALCIFEROL\CITRIC ACID MONOHYDRAT [Concomitant]
     Active Substance: ASCORBIC ACID\CALCIUM PHOSPHATE\CHOLECALCIFEROL\CITRIC ACID MONOHYDRATE
     Indication: Product used for unknown indication
     Dosage: UNK, QD
     Route: 065
     Dates: start: 20210224
  19. CALCIUM [Concomitant]
     Active Substance: CALCIUM
     Indication: Product used for unknown indication
     Dosage: UNK
     Route: 065
     Dates: start: 20210224
  20. CARBOPLATIN [Concomitant]
     Active Substance: CARBOPLATIN
     Indication: Product used for unknown indication
     Route: 065
     Dates: start: 20211210
  21. CARVEDILOL [Concomitant]
     Active Substance: CARVEDILOL
     Dosage: QD
     Route: 065
     Dates: start: 200905
  22. CARVEDILOL [Concomitant]
     Active Substance: CARVEDILOL
     Indication: Product used for unknown indication
     Dosage: UNK, QD
     Route: 065
     Dates: start: 200905
  23. AMOXICILLIN\CLAVULANATE POTASSIUM [Concomitant]
     Active Substance: AMOXICILLIN\CLAVULANATE POTASSIUM
     Indication: Product used for unknown indication
     Dosage: UNK
     Route: 065
  24. CYCLOPHOSPHAMIDE [Concomitant]
     Active Substance: CYCLOPHOSPHAMIDE
     Indication: Product used for unknown indication
     Dosage: UNK
     Route: 065
     Dates: start: 20210713, end: 20210915
  25. CYCLOPHOSPHAMIDE [Concomitant]
     Active Substance: CYCLOPHOSPHAMIDE
     Route: 065
     Dates: start: 20210713, end: 20210915
  26. DEXABENE [Concomitant]
     Dosage: QD
     Route: 065
     Dates: start: 20210222, end: 20210223
  27. DEXABENE [Concomitant]
     Dosage: UNK, QD
     Route: 065
     Dates: start: 20210222, end: 20210223
  28. DEXABENE [Concomitant]
     Indication: Parotitis
     Dosage: UNK
     Route: 065
     Dates: start: 20210217, end: 20210218
  29. DEXABENE [Concomitant]
     Route: 065
     Dates: start: 20210217, end: 20210218
  30. DEXAMETHASONE [Concomitant]
     Active Substance: DEXAMETHASONE
     Dosage: QD
     Route: 065
     Dates: start: 20210105, end: 20210107
  31. DEXAMETHASONE [Concomitant]
     Active Substance: DEXAMETHASONE
     Dosage: QD
     Route: 065
     Dates: start: 20210221, end: 20210223
  32. DEXAMETHASONE [Concomitant]
     Active Substance: DEXAMETHASONE
     Dosage: QD
     Route: 065
     Dates: start: 20210317, end: 20210319
  33. DEXAMETHASONE [Concomitant]
     Active Substance: DEXAMETHASONE
     Indication: Product used for unknown indication
     Dosage: UNK, QD
     Route: 065
     Dates: start: 20210105, end: 20210107
  34. DEXAMETHASONE [Concomitant]
     Active Substance: DEXAMETHASONE
     Dosage: UNK, QD
     Route: 065
     Dates: start: 20210221, end: 20210223
  35. DEXAMETHASONE [Concomitant]
     Active Substance: DEXAMETHASONE
     Dosage: UNK, QD
     Route: 065
     Dates: start: 20210317, end: 20210319
  36. DEXAMETHASONE [Concomitant]
     Active Substance: DEXAMETHASONE
     Dosage: UNK
     Route: 065
     Dates: start: 20210126, end: 20210128
  37. DEXAMETHASONE [Concomitant]
     Active Substance: DEXAMETHASONE
     Dosage: UNK
     Route: 065
     Dates: start: 20210224, end: 20210226
  38. DEXAMETHASONE [Concomitant]
     Active Substance: DEXAMETHASONE
     Dosage: UNK, 0.5 DAY
     Route: 065
     Dates: start: 20210218, end: 20210220
  39. DEXAMETHASONE [Concomitant]
     Active Substance: DEXAMETHASONE
     Route: 065
     Dates: start: 20210126, end: 20210128
  40. DEXAMETHASONE [Concomitant]
     Active Substance: DEXAMETHASONE
     Route: 065
     Dates: start: 20210218, end: 20210220
  41. DEXAMETHASONE [Concomitant]
     Active Substance: DEXAMETHASONE
     Route: 065
     Dates: start: 20210224, end: 20210226
  42. EPIRUBICIN [Concomitant]
     Active Substance: EPIRUBICIN
     Indication: Product used for unknown indication
     Dosage: UNK
     Route: 065
     Dates: start: 20210713, end: 20210914
  43. EPIRUBICIN [Concomitant]
     Active Substance: EPIRUBICIN
     Route: 065
     Dates: start: 20210713, end: 20210914
  44. ETOPOSIDE [Concomitant]
     Active Substance: ETOPOSIDE
     Indication: Small cell lung cancer extensive stage
     Dosage: 212 MG
     Route: 042
     Dates: start: 20201211
  45. Excipial [Concomitant]
     Indication: Product used for unknown indication
     Dosage: UNK
     Route: 065
  46. GABAPENTIN [Concomitant]
     Active Substance: GABAPENTIN
     Indication: Product used for unknown indication
     Dosage: UNK, 0.5 DAY
     Route: 065
     Dates: start: 201809
  47. GABAPENTIN [Concomitant]
     Active Substance: GABAPENTIN
     Route: 065
     Dates: start: 201809
  48. HYDROMORPHONE HYDROCHLORIDE [Concomitant]
     Active Substance: HYDROMORPHONE HYDROCHLORIDE
     Dosage: 1.3 MG
     Route: 065
     Dates: start: 20210319
  49. HYDROMORPHONE HYDROCHLORIDE [Concomitant]
     Active Substance: HYDROMORPHONE HYDROCHLORIDE
     Indication: Product used for unknown indication
     Dosage: RET. 2 MG (0.5 DAY)
     Route: 065
     Dates: start: 20210317
  50. HYDROMORPHONE HYDROCHLORIDE [Concomitant]
     Active Substance: HYDROMORPHONE HYDROCHLORIDE
     Dosage: 1.3 MG
     Route: 065
     Dates: start: 20210319
  51. JANUMET [Concomitant]
     Active Substance: METFORMIN HYDROCHLORIDE\SITAGLIPTIN PHOSPHATE
     Indication: Product used for unknown indication
     Dosage: UNK, 0.5 DAY
     Route: 065
     Dates: start: 201706
  52. JANUMET [Concomitant]
     Active Substance: METFORMIN HYDROCHLORIDE\SITAGLIPTIN PHOSPHATE
     Route: 065
     Dates: start: 201706
  53. LANSOBENE [Concomitant]
     Dosage: QD
     Route: 065
     Dates: start: 200509
  54. LANSOBENE [Concomitant]
     Indication: Product used for unknown indication
     Dosage: UNK, QD
     Route: 065
     Dates: start: 200509
  55. EDOXABAN TOSYLATE [Concomitant]
     Active Substance: EDOXABAN TOSYLATE
     Dosage: QD
     Route: 065
     Dates: start: 20210129
  56. EDOXABAN TOSYLATE [Concomitant]
     Active Substance: EDOXABAN TOSYLATE
     Dosage: QD
     Route: 065
     Dates: start: 202007, end: 20210126
  57. EDOXABAN TOSYLATE [Concomitant]
     Active Substance: EDOXABAN TOSYLATE
     Indication: Product used for unknown indication
     Dosage: UNK, QD
     Route: 065
     Dates: start: 202007, end: 20210126
  58. EDOXABAN TOSYLATE [Concomitant]
     Active Substance: EDOXABAN TOSYLATE
     Dosage: UNK, QD
     Route: 065
     Dates: start: 20210129
  59. POLYETHYLENE GLYCOL 3350\POTASSIUM CHLORIDE\SODIUM BICARBONATE\SODIUM [Concomitant]
     Active Substance: POLYETHYLENE GLYCOL 3350\POTASSIUM CHLORIDE\SODIUM BICARBONATE\SODIUM CHLORIDE
     Dosage: QD
     Route: 065
     Dates: start: 20210319
  60. POLYETHYLENE GLYCOL 3350\POTASSIUM CHLORIDE\SODIUM BICARBONATE\SODIUM [Concomitant]
     Active Substance: POLYETHYLENE GLYCOL 3350\POTASSIUM CHLORIDE\SODIUM BICARBONATE\SODIUM CHLORIDE
     Indication: Product used for unknown indication
     Dosage: UNK, QD
     Route: 065
     Dates: start: 20210319
  61. MUNDISAL [Concomitant]
     Indication: Product used for unknown indication
     Dosage: UNK (0.5)
     Route: 065
     Dates: start: 20210310
  62. NEULASTA [Concomitant]
     Active Substance: PEGFILGRASTIM
     Dosage: QD
     Route: 065
     Dates: start: 20210227, end: 20210227
  63. NEULASTA [Concomitant]
     Active Substance: PEGFILGRASTIM
     Dosage: QD
     Route: 065
     Dates: start: 20210320, end: 20210320
  64. NEULASTA [Concomitant]
     Active Substance: PEGFILGRASTIM
     Indication: Product used for unknown indication
     Dosage: UNK, QD
     Route: 065
     Dates: start: 20210227, end: 20210227
  65. NEULASTA [Concomitant]
     Active Substance: PEGFILGRASTIM
     Dosage: UNK, QD
     Route: 065
     Dates: start: 20210320, end: 20210320
  66. Novalgin [Concomitant]
     Indication: Product used for unknown indication
     Dosage: UNK
     Route: 065
     Dates: start: 202012
  67. CHOLECALCIFEROL [Concomitant]
     Active Substance: CHOLECALCIFEROL
     Dosage: QD
     Route: 065
     Dates: start: 20210225
  68. CHOLECALCIFEROL [Concomitant]
     Active Substance: CHOLECALCIFEROL
     Indication: Prophylaxis
     Dosage: UNK, QD
     Route: 065
     Dates: start: 20210225
  69. ONDANSETRON [Concomitant]
     Active Substance: ONDANSETRON
     Dosage: 16 MG, QD
     Route: 065
     Dates: start: 20210320
  70. ONDANSETRON [Concomitant]
     Active Substance: ONDANSETRON
     Dosage: 16.000MG QD
     Route: 065
     Dates: start: 20210320
  71. ONDANSETRON [Concomitant]
     Active Substance: ONDANSETRON
     Dosage: QD
     Route: 065
     Dates: start: 20210105, end: 20210107
  72. ONDANSETRON [Concomitant]
     Active Substance: ONDANSETRON
     Dosage: QD
     Route: 065
     Dates: start: 20210227, end: 20210303
  73. ONDANSETRON [Concomitant]
     Active Substance: ONDANSETRON
     Dosage: QD
     Route: 065
     Dates: start: 20210317, end: 20210324
  74. ONDANSETRON [Concomitant]
     Active Substance: ONDANSETRON
     Dosage: QD
     Route: 065
     Dates: start: 20210317, end: 20210324
  75. ONDANSETRON [Concomitant]
     Active Substance: ONDANSETRON
     Indication: Product used for unknown indication
     Dosage: UNK, QD
     Route: 065
     Dates: start: 20210105, end: 20210107
  76. ONDANSETRON [Concomitant]
     Active Substance: ONDANSETRON
     Dosage: UNK, QD
     Route: 065
     Dates: start: 20210227, end: 20210303
  77. ONDANSETRON [Concomitant]
     Active Substance: ONDANSETRON
     Dosage: UNK, QD
     Route: 065
     Dates: start: 20210317, end: 20210324
  78. ONDANSETRON [Concomitant]
     Active Substance: ONDANSETRON
     Dosage: UNK
     Route: 065
     Dates: start: 20210126, end: 20210128
  79. ONDANSETRON [Concomitant]
     Active Substance: ONDANSETRON
     Dosage: UNK
     Route: 065
     Dates: start: 20210129, end: 20210202
  80. ONDANSETRON [Concomitant]
     Active Substance: ONDANSETRON
     Dosage: UNK
     Route: 065
     Dates: start: 20210224, end: 20210226
  81. ONDANSETRON [Concomitant]
     Active Substance: ONDANSETRON
     Dosage: UNK
     Route: 065
     Dates: start: 20210326
  82. ONDANSETRON [Concomitant]
     Active Substance: ONDANSETRON
     Dosage: UNK, 0.5 DAY
     Route: 065
     Dates: start: 20210108, end: 20210112
  83. ONDANSETRON [Concomitant]
     Active Substance: ONDANSETRON
     Route: 065
     Dates: start: 20210108, end: 20210112
  84. ONDANSETRON [Concomitant]
     Active Substance: ONDANSETRON
     Route: 065
     Dates: start: 20210126, end: 20210128
  85. ONDANSETRON [Concomitant]
     Active Substance: ONDANSETRON
     Route: 065
     Dates: start: 20210129, end: 20210202
  86. ONDANSETRON [Concomitant]
     Active Substance: ONDANSETRON
     Route: 065
     Dates: start: 20210224, end: 20210226
  87. ONDANSETRON [Concomitant]
     Active Substance: ONDANSETRON
     Route: 065
     Dates: start: 20210326
  88. ONDANSETRON [Concomitant]
     Active Substance: ONDANSETRON
     Route: 065
     Dates: start: 20210326
  89. PFIZER-BIONTECH COVID-19 VACCINE [Concomitant]
     Active Substance: TOZINAMERAN
     Indication: Product used for unknown indication
     Dosage: UNK
     Route: 065
  90. SPIRIVA [Concomitant]
     Active Substance: TIOTROPIUM BROMIDE MONOHYDRATE
     Indication: Product used for unknown indication
     Dosage: UNK, QD
     Route: 065
     Dates: start: 20201203
  91. TEGRETOL [Concomitant]
     Active Substance: CARBAMAZEPINE
     Indication: Product used for unknown indication
     Dosage: UNK, 0.5 DAY
     Route: 065
     Dates: start: 202011
  92. TEGRETOL [Concomitant]
     Active Substance: CARBAMAZEPINE
     Route: 065
     Dates: start: 202011
  93. VINCRISTINE [Concomitant]
     Active Substance: VINCRISTINE
     Indication: Product used for unknown indication
     Dosage: UNK
     Route: 065
     Dates: start: 20210713, end: 20210914
  94. VINCRISTINE [Concomitant]
     Active Substance: VINCRISTINE
     Route: 065
     Dates: start: 20210713, end: 20210914
  95. XGEVA [Concomitant]
     Active Substance: DENOSUMAB
     Dosage: QD
     Route: 065
     Dates: start: 20210226, end: 20210226
  96. XGEVA [Concomitant]
     Active Substance: DENOSUMAB
     Dosage: QD
     Route: 065
     Dates: start: 20210319, end: 20210319
  97. XGEVA [Concomitant]
     Active Substance: DENOSUMAB
     Indication: Product used for unknown indication
     Dosage: UNK, QD
     Route: 065
     Dates: start: 20210226, end: 20210226
  98. XGEVA [Concomitant]
     Active Substance: DENOSUMAB
     Dosage: UNK, QD
     Route: 065
     Dates: start: 20210319, end: 20210319

REACTIONS (7)
  - Parotitis [Not Recovered/Not Resolved]
  - Lymphadenopathy [Not Recovered/Not Resolved]
  - Platelet count decreased [Recovered/Resolved]
  - Anaemia [Not Recovered/Not Resolved]
  - Fatigue [Not Recovered/Not Resolved]
  - Chest pain [Not Recovered/Not Resolved]
  - Pyrexia [Recovered/Resolved]

NARRATIVE: CASE EVENT DATE: 20201214
